FAERS Safety Report 5322751-7 (Version None)
Quarter: 2007Q2

REPORT INFORMATION
  Report Type: 
  Country: None (occurrence: None)
  Receive Date: 20070511
  Receipt Date: 20070427
  Transmission Date: 20071010
  Serious: Yes (Hospitalization)
  Sender: FDA-Public Use
  Company Number: JP-PFIZER INC-2007030550

PATIENT
  Sex: Male
  Weight: 83 kg

DRUGS (3)
  1. SALAZOPYRIN [Suspect]
     Indication: COLITIS ULCERATIVE
     Route: 048
     Dates: start: 20070330, end: 20070411
  2. MESALAZINE [Interacting]
     Indication: COLITIS ULCERATIVE
     Dosage: DAILY DOSE:2250MG-FREQ:THREE TIMES DAILY
     Route: 048
     Dates: start: 20070407, end: 20070409
  3. BIO THREE [Concomitant]
     Route: 048

REACTIONS (5)
  - DRUG ERUPTION [None]
  - DRUG INTERACTION [None]
  - GENERALISED ERYTHEMA [None]
  - HEPATIC FUNCTION ABNORMAL [None]
  - PYREXIA [None]
